FAERS Safety Report 5673950-6 (Version None)
Quarter: 2008Q1

REPORT INFORMATION
  Report Type: 
  Country: None (occurrence: None)
  Receive Date: 20080319
  Receipt Date: 20080319
  Transmission Date: 20080703
  Serious: Yes (Hospitalization)
  Sender: FDA-Public Use
  Company Number: None

PATIENT
  Sex: Female
  Weight: 51 kg

DRUGS (6)
  1. BEVACIZUMAB (RHUMAB VEGF) [Suspect]
     Dosage: 508 MG
     Dates: end: 20080227
  2. FLUOROURACIL [Suspect]
     Dosage: 6586 MG
     Dates: end: 20080227
  3. LEUCOVORIN CALCIUM [Suspect]
     Dosage: 1176 MG
     Dates: end: 20080227
  4. GABAPENTIN [Concomitant]
  5. HYDROCLORATHIAZIDE [Concomitant]
  6. RAMPRIL [Concomitant]

REACTIONS (5)
  - ABDOMINAL PAIN [None]
  - COLONOSCOPY ABNORMAL [None]
  - DIARRHOEA HAEMORRHAGIC [None]
  - INTESTINAL ISCHAEMIA [None]
  - VOMITING [None]
